FAERS Safety Report 21189301 (Version 1)
Quarter: 2022Q3

REPORT INFORMATION
  Report Type: Spontaneous
  Country: US (occurrence: None)
  Receive Date: 20220808
  Receipt Date: 20220808
  Transmission Date: 20221027
  Serious: Yes (Hospitalization)
  Sender: FDA-Public Use
  Company Number: None

PATIENT
  Sex: Male

DRUGS (2)
  1. GAMUNEX-C [Suspect]
     Active Substance: HUMAN IMMUNOGLOBULIN G
     Indication: Chronic inflammatory demyelinating polyradiculoneuropathy
     Dosage: 5 GM/50ML??INFUSE 95 GRAMS (950 ML) INTRAVENOUSLY OVER 1 DAY ONCE EVERY 3 WEEKS ?
     Route: 042
     Dates: start: 20210325
  2. GAMUNEX-C [Suspect]
     Active Substance: HUMAN IMMUNOGLOBULIN G
     Dosage: OTHER QUANTITY : 96 GRAMS (950 ML);?FREQUENCY : EVERY THREE WEEKS;?
     Route: 042

REACTIONS (1)
  - Hospitalisation [None]
